FAERS Safety Report 18408502 (Version 1)
Quarter: 2020Q4

REPORT INFORMATION
  Report Type: Spontaneous
  Country: US (occurrence: US)
  Receive Date: 20201020
  Receipt Date: 20201020
  Transmission Date: 20210114
  Serious: No
  Sender: FDA-Public Use
  Company Number: US-PERRIGO-20US012528

PATIENT
  Sex: Female
  Weight: 81.63 kg

DRUGS (3)
  1. IMIQUIMOD. [Suspect]
     Active Substance: IMIQUIMOD
     Indication: PRURITUS
     Dosage: 12.5 MG, BID
     Route: 061
     Dates: start: 2019, end: 2019
  2. IMIQUIMOD. [Suspect]
     Active Substance: IMIQUIMOD
     Indication: SKIN DISCOLOURATION
     Dosage: 12.5 MG, BID
     Route: 061
     Dates: start: 20200824, end: 20200826
  3. IMIQUIMOD. [Suspect]
     Active Substance: IMIQUIMOD
     Indication: SKIN TEXTURE ABNORMAL

REACTIONS (2)
  - Keloid scar [Not Recovered/Not Resolved]
  - Off label use [Recovered/Resolved]

NARRATIVE: CASE EVENT DATE: 2019
